FAERS Safety Report 14695379 (Version 1)
Quarter: 2018Q1

REPORT INFORMATION
  Report Type: Spontaneous
  Country: US (occurrence: US)
  Receive Date: 20180329
  Receipt Date: 20180329
  Transmission Date: 20180509
  Serious: Yes (Hospitalization)
  Sender: FDA-Public Use
  Company Number: US-ACTELION-A-NJ2018-169536

PATIENT
  Age: 78 Year
  Sex: Female

DRUGS (10)
  1. BUMEX [Concomitant]
     Active Substance: BUMETANIDE
  2. DILTIAZEM. [Concomitant]
     Active Substance: DILTIAZEM
  3. MULTI VITAMIN [Concomitant]
     Active Substance: VITAMINS
  4. LETROZOLE. [Concomitant]
     Active Substance: LETROZOLE
  5. ATORVASTATIN [Concomitant]
     Active Substance: ATORVASTATIN
  6. OPSUMIT [Suspect]
     Active Substance: MACITENTAN
     Indication: PRODUCT USED FOR UNKNOWN INDICATION
     Dosage: 10 MG, QD
     Route: 048
  7. RANITIDINE. [Concomitant]
     Active Substance: RANITIDINE
  8. CALCIUM [Concomitant]
     Active Substance: CALCIUM
  9. POTASSIUM [Concomitant]
     Active Substance: POTASSIUM
  10. OMEPRAZOLE. [Concomitant]
     Active Substance: OMEPRAZOLE

REACTIONS (1)
  - Heart rate increased [Unknown]
